FAERS Safety Report 4481358-4 (Version None)
Quarter: 2004Q4

REPORT INFORMATION
  Report Type: 
  Country: None (occurrence: None)
  Receive Date: 20041021
  Receipt Date: 20041014
  Transmission Date: 20050328
  Serious: Yes (Other)
  Sender: FDA-Public Use
  Company Number: GB-GLAXOSMITHKLINE-B0348200A

PATIENT
  Age: 77 Year
  Sex: Male
  Weight: 75 kg

DRUGS (5)
  1. AVANDIA [Suspect]
     Indication: DIABETES MELLITUS
     Dosage: 4MG PER DAY
     Route: 048
     Dates: start: 20040730, end: 20040929
  2. ATORVASTATIN CALCIUM [Concomitant]
     Indication: LIPIDS INCREASED
     Dosage: 10MG PER DAY
     Route: 048
     Dates: start: 20031212
  3. GLICLAZIDE [Concomitant]
     Indication: DIABETES MELLITUS
     Dosage: 40MG PER DAY
     Route: 048
     Dates: start: 20040716, end: 20040723
  4. METFORMIN HCL [Concomitant]
     Indication: DIABETES MELLITUS
     Dosage: 500MG PER DAY
     Route: 048
     Dates: start: 20031211, end: 20040716
  5. ASPIRIN [Concomitant]
     Dosage: 75MG PER DAY
     Route: 048
     Dates: start: 20040628

REACTIONS (5)
  - ABNORMAL DREAMS [None]
  - GASTROINTESTINAL DISORDER [None]
  - HEADACHE [None]
  - LETHARGY [None]
  - PAIN IN EXTREMITY [None]
